FAERS Safety Report 4716492-4 (Version None)
Quarter: 2005Q3

REPORT INFORMATION
  Report Type: 
  Country: None (occurrence: None)
  Receive Date: 20050713
  Receipt Date: 20050705
  Transmission Date: 20060218
  Serious: Yes (Hospitalization)
  Sender: FDA-Public Use
  Company Number: 200510431BFR

PATIENT
  Age: 55 Year
  Sex: Female
  Weight: 64 kg

DRUGS (4)
  1. CLARADOL CAFEINE [Suspect]
     Indication: MIGRAINE
     Dosage: PRN, ORAL
     Route: 048
  2. ZOMIG [Suspect]
     Indication: MIGRAINE
     Dosage: ORAL
     Route: 048
  3. ASPEGIC 325 [Concomitant]
  4. MEDIATOR [Concomitant]

REACTIONS (1)
  - MYOCARDIAL INFARCTION [None]
